FAERS Safety Report 9787110 (Version 1)
Quarter: 2013Q4

REPORT INFORMATION
  Report Type: Spontaneous
  Country: GB (occurrence: GB)
  Receive Date: 20131228
  Receipt Date: 20131228
  Transmission Date: 20140711
  Serious: Yes (Other)
  Sender: FDA-Public Use
  Company Number: GB-ROCHE-1324675

PATIENT
  Age: 2 Decade
  Sex: Female

DRUGS (15)
  1. MYCOPHENOLATE MOFETIL [Suspect]
     Indication: LIVER TRANSPLANT
     Route: 048
     Dates: start: 20080702
  2. TACROLIMUS [Interacting]
     Indication: LIVER TRANSPLANT
     Route: 048
     Dates: start: 20080702
  3. VORICONAZOLE [Interacting]
     Indication: ASPERGILLUS INFECTION
     Route: 048
     Dates: start: 201310
  4. VORICONAZOLE [Interacting]
     Route: 048
     Dates: start: 20130925, end: 201310
  5. VORICONAZOLE [Interacting]
     Route: 048
  6. ACETYLCYSTEINE [Concomitant]
  7. ALPHA TOCOPHEROL [Concomitant]
  8. ASPIRIN [Concomitant]
  9. BUDESONIDE/FORMOTEROL FUMARATE [Concomitant]
  10. CETIRIZINE [Concomitant]
  11. COLECALCIFEROL [Concomitant]
  12. INSULIN HUMAN [Concomitant]
  13. PANCREATIN [Concomitant]
  14. RETINOL [Concomitant]
     Indication: CYSTIC FIBROSIS
  15. SALBUTAMOL [Concomitant]
     Dosage: INHALATION USE
     Route: 065

REACTIONS (6)
  - Alopecia [Not Recovered/Not Resolved]
  - Renal disorder [Unknown]
  - Lip pain [Recovering/Resolving]
  - Potentiating drug interaction [Unknown]
  - Skin exfoliation [Not Recovered/Not Resolved]
  - Stomatitis [Recovering/Resolving]
